FAERS Safety Report 14778822 (Version 1)
Quarter: 2018Q2

REPORT INFORMATION
  Report Type: Spontaneous
  Country: SE (occurrence: SE)
  Receive Date: 20180419
  Receipt Date: 20180419
  Transmission Date: 20180711
  Serious: Yes (Life-Threatening, Hospitalization, Other)
  Sender: FDA-Public Use
  Company Number: SE-JNJFOC-20180421933

PATIENT
  Age: 76 Year
  Sex: Female

DRUGS (7)
  1. DUROFERON [Concomitant]
     Active Substance: FERROUS SULFATE
     Route: 065
  2. FELODIPINE. [Concomitant]
     Active Substance: FELODIPINE
     Route: 065
  3. XARELTO [Suspect]
     Active Substance: RIVAROXABAN
     Indication: PRODUCT USED FOR UNKNOWN INDICATION
     Route: 048
     Dates: start: 20160323, end: 20180315
  4. BEHEPAN [Concomitant]
     Active Substance: HYDROXOCOBALAMIN
     Route: 065
  5. CANDESARTAN. [Concomitant]
     Active Substance: CANDESARTAN
     Route: 065
  6. CRESTOR [Concomitant]
     Active Substance: ROSUVASTATIN CALCIUM
     Route: 065
  7. FESOTERODINE [Concomitant]
     Active Substance: FESOTERODINE
     Route: 065

REACTIONS (2)
  - Pulmonary embolism [Not Recovered/Not Resolved]
  - Drug ineffective [Not Recovered/Not Resolved]

NARRATIVE: CASE EVENT DATE: 20180315
